FAERS Safety Report 6160649-5 (Version None)
Quarter: 2009Q2

REPORT INFORMATION
  Report Type: 
  Country: None (occurrence: None)
  Receive Date: 20090416
  Receipt Date: 20090402
  Transmission Date: 20091009
  Serious: Yes (Death)
  Sender: FDA-Public Use
  Company Number: A-CH2009-24641

PATIENT
  Age: 55 Year
  Sex: Female
  Weight: 56 kg

DRUGS (2)
  1. TRACLEER [Suspect]
     Indication: PULMONARY ARTERIAL HYPERTENSION
     Dosage: 62.5 MG, BID, ORAL; 125 MG, BID,ORAL
     Route: 048
     Dates: start: 20020923, end: 20090220
  2. TRACLEER [Suspect]
     Indication: PULMONARY ARTERIAL HYPERTENSION
     Dosage: 62.5 MG, BID, ORAL; 125 MG, BID,ORAL
     Route: 048
     Dates: start: 20090221, end: 20090314

REACTIONS (2)
  - DISEASE PROGRESSION [None]
  - SCLERODERMA [None]
